FAERS Safety Report 10268084 (Version 2)
Quarter: 2014Q2

REPORT INFORMATION
  Report Type: Spontaneous
  Country: IT (occurrence: IT)
  Receive Date: 20140630
  Receipt Date: 20140630
  Transmission Date: 20141212
  Serious: Yes (Hospitalization, Other)
  Sender: FDA-Public Use
  Company Number: IT-WATSON-2014-11277

PATIENT
  Age: 58 Year
  Sex: Female

DRUGS (16)
  1. ZOLPIDEM (UNKNOWN) [Suspect]
     Indication: INSOMNIA
     Dosage: 10 MG, TOTAL
     Route: 048
     Dates: start: 20140505, end: 20140505
  2. ALLOPURINOL TEVA [Suspect]
     Indication: PRODUCT USED FOR UNKNOWN INDICATION
     Dosage: 300 MG, UNK
     Route: 065
  3. CARDICOR [Concomitant]
     Indication: PRODUCT USED FOR UNKNOWN INDICATION
     Dosage: 5 MG, BID
     Route: 065
  4. CACIT                              /00944201/ [Concomitant]
     Indication: PRODUCT USED FOR UNKNOWN INDICATION
     Dosage: UNK
     Route: 065
  5. NORVASC [Concomitant]
     Indication: PRODUCT USED FOR UNKNOWN INDICATION
     Dosage: 5 MG, BID
     Route: 065
  6. TOP-NITRO [Concomitant]
     Indication: PRODUCT USED FOR UNKNOWN INDICATION
     Dosage: 10 MG, DAILY
     Route: 062
  7. MONOKET [Concomitant]
     Indication: PRODUCT USED FOR UNKNOWN INDICATION
     Dosage: 20 MG, DAILY
     Route: 065
  8. FUROSEMIDE TEVA [Concomitant]
     Indication: PRODUCT USED FOR UNKNOWN INDICATION
     Dosage: 125 MG, BID
     Route: 065
  9. PEPTAZOL                           /01159001/ [Concomitant]
     Indication: PRODUCT USED FOR UNKNOWN INDICATION
     Dosage: UNK
     Route: 065
  10. SIMVASTATIN RATIOPHARM [Concomitant]
     Indication: PRODUCT USED FOR UNKNOWN INDICATION
     Dosage: 40 MG, QHS
     Route: 065
  11. CARDIOASPIRIN [Concomitant]
     Indication: PRODUCT USED FOR UNKNOWN INDICATION
     Dosage: 100 MG, DAILY
     Route: 065
  12. DEURSIL [Concomitant]
     Indication: PRODUCT USED FOR UNKNOWN INDICATION
     Dosage: UNK
     Route: 065
  13. CITALOPRAM [Concomitant]
     Indication: PRODUCT USED FOR UNKNOWN INDICATION
     Dosage: UNK
     Route: 065
  14. NITROCOR [Concomitant]
     Indication: PRODUCT USED FOR UNKNOWN INDICATION
     Dosage: 1 PATCH DAILY FROM 20 TO 8
     Route: 065
  15. RETACRIT [Concomitant]
     Indication: PRODUCT USED FOR UNKNOWN INDICATION
     Dosage: 8000 U TO BE DONE AT THE END OF DIALYSIS
     Route: 065
  16. PANTORC [Concomitant]
     Indication: PRODUCT USED FOR UNKNOWN INDICATION
     Dosage: 1 DF, DAILY
     Route: 065

REACTIONS (16)
  - Urticaria [Recovering/Resolving]
  - Renal failure chronic [Not Recovered/Not Resolved]
  - Rash morbilliform [Recovering/Resolving]
  - Asthenia [Recovering/Resolving]
  - Depressed level of consciousness [Recovered/Resolved]
  - Clostridium difficile colitis [Recovered/Resolved]
  - Hyperkalaemia [Recovering/Resolving]
  - Metabolic acidosis [Recovering/Resolving]
  - Dehydration [Recovering/Resolving]
  - Mucosal inflammation [Recovering/Resolving]
  - Liver disorder [Unknown]
  - Gallbladder disorder [Unknown]
  - Intracardiac thrombus [Unknown]
  - Spleen disorder [Unknown]
  - Vascular calcification [Unknown]
  - Skin exfoliation [Recovering/Resolving]
